FAERS Safety Report 15965983 (Version 15)
Quarter: 2021Q1

REPORT INFORMATION
  Report Type: Spontaneous
  Country: US (occurrence: US)
  Receive Date: 20190215
  Receipt Date: 20210216
  Transmission Date: 20210419
  Serious: Yes (Hospitalization, Disabling, Other)
  Sender: FDA-Public Use
  Company Number: US-PFIZER INC-2019061868

PATIENT
  Age: 87 Year
  Sex: Female
  Weight: 61 kg

DRUGS (4)
  1. XELJANZ [Suspect]
     Active Substance: TOFACITINIB CITRATE
     Dosage: 5 MG, ALTERNATE DAY (EVERY OTHER DAY)
  2. PANTOPRAZOLE [Concomitant]
     Active Substance: PANTOPRAZOLE
     Indication: DYSPHAGIA
     Dosage: 40 MG
  3. AMLODIPINE BESYLATE. [Concomitant]
     Active Substance: AMLODIPINE BESYLATE
     Dosage: 5 MG
  4. XELJANZ [Suspect]
     Active Substance: TOFACITINIB CITRATE
     Indication: COLITIS ULCERATIVE
     Dosage: 5 MG, 2X/DAY

REACTIONS (19)
  - Intentional product misuse [Unknown]
  - Affect lability [Unknown]
  - Body height decreased [Unknown]
  - Dry throat [Unknown]
  - Balance disorder [Unknown]
  - Fall [Unknown]
  - Feeling abnormal [Unknown]
  - COVID-19 [Unknown]
  - Ligament sprain [Unknown]
  - Foot fracture [Unknown]
  - Memory impairment [Unknown]
  - Dementia [Unknown]
  - Diarrhoea [Not Recovered/Not Resolved]
  - Malaise [Unknown]
  - Pain [Unknown]
  - Limb discomfort [Unknown]
  - Back pain [Unknown]
  - Mutism [Unknown]
  - Hypoacusis [Unknown]

NARRATIVE: CASE EVENT DATE: 20200229
